FAERS Safety Report 6727759-2 (Version None)
Quarter: 2010Q2

REPORT INFORMATION
  Report Type: 
  Country: None (occurrence: None)
  Receive Date: 20100517
  Receipt Date: 20100513
  Transmission Date: 20101027
  Serious: Yes (Other)
  Sender: FDA-Public Use
  Company Number: PK-ROCHE-702813

PATIENT
  Sex: Female
  Weight: 64 kg

DRUGS (6)
  1. ACTEMRA [Suspect]
     Route: 042
     Dates: start: 20091214, end: 20100314
  2. METHOTRATE [Concomitant]
     Route: 030
     Dates: start: 20060101
  3. NEORAL [Concomitant]
     Route: 048
     Dates: start: 20060101
  4. ATENOLOL [Concomitant]
     Indication: HYPERTENSION
     Route: 048
     Dates: start: 20060101
  5. DELTACORTRIL [Concomitant]
     Route: 048
     Dates: start: 20040101
  6. ASPIRIN [Concomitant]
     Route: 048
     Dates: start: 20060101

REACTIONS (1)
  - VISION BLURRED [None]
